FAERS Safety Report 17005940 (Version 1)
Quarter: 2019Q4

REPORT INFORMATION
  Report Type: Spontaneous
  Country: US (occurrence: US)
  Receive Date: 20191107
  Receipt Date: 20191107
  Transmission Date: 20200122
  Serious: No
  Sender: FDA-Public Use
  Company Number: US-GILEAD-2019-0436524

PATIENT
  Age: 34 Year
  Sex: Female

DRUGS (4)
  1. NITROFURANTOIN. [Concomitant]
     Active Substance: NITROFURANTOIN
     Dosage: UNK
  2. DOXYCYCLINE MONOHYDRATE [Concomitant]
     Active Substance: DOXYCYCLINE
     Dosage: UNK
  3. SOFOSBUVIR;VELPATASVIR [Suspect]
     Active Substance: SOFOSBUVIR\VELPATASVIR
     Indication: CHRONIC HEPATITIS C
     Dosage: 1 DOSAGE FORM, QD
     Route: 048
     Dates: start: 201910
  4. CLINDAMYCIN PHOSPHATE. [Concomitant]
     Active Substance: CLINDAMYCIN PHOSPHATE
     Dosage: UNK

REACTIONS (3)
  - Product dose omission [Recovered/Resolved]
  - Headache [Recovered/Resolved with Sequelae]
  - Inappropriate schedule of product administration [Unknown]

NARRATIVE: CASE EVENT DATE: 2019
